FAERS Safety Report 7660465-9 (Version None)
Quarter: 2011Q3

REPORT INFORMATION
  Report Type: 
  Country: None (occurrence: None)
  Receive Date: 20110805
  Receipt Date: 20110801
  Transmission Date: 20111222
  Serious: Yes (Life-Threatening, Hospitalization)
  Sender: FDA-Public Use
  Company Number: US-ASTRAZENECA-2011SE31965

PATIENT
  Age: 19269 Day
  Sex: Female
  Weight: 83 kg

DRUGS (22)
  1. CYMBALTA [Concomitant]
  2. XANAX [Concomitant]
  3. TRAZODONE HCL [Concomitant]
  4. OMEPRAZOLE [Suspect]
     Indication: GASTROOESOPHAGEAL REFLUX DISEASE
     Route: 048
  5. CYMBALTA [Concomitant]
  6. ZANAFLEX [Concomitant]
  7. KLONOPIN [Concomitant]
  8. SEROQUEL [Suspect]
     Indication: BIPOLAR DISORDER
     Route: 048
     Dates: start: 20060101
  9. GEODON [Concomitant]
  10. ELAVIL [Concomitant]
  11. ATENOLOL [Suspect]
     Route: 048
  12. XANAX [Concomitant]
  13. XANAX [Concomitant]
  14. ZANAFLEX [Concomitant]
  15. DUONEB [Concomitant]
     Dosage: ONE TREATMENT Q 4H
  16. VICODAN [Concomitant]
  17. DARVOCET-N 50 [Concomitant]
     Dosage: 100 TID
  18. ZOVIRAX [Concomitant]
     Dosage: 400 BID
  19. ASPIRIN [Concomitant]
  20. O2 [Concomitant]
     Dosage: 4 TO 6 LITERS NASAL CANULA, WEAN
  21. NEXIUM [Suspect]
     Indication: GASTROOESOPHAGEAL REFLUX DISEASE
     Route: 048
     Dates: start: 20080101
  22. NORCO [Concomitant]
     Indication: PAIN
     Dosage: 7.5/325 ONE Q 6 H. PRN

REACTIONS (6)
  - PNEUMONIA NECROTISING [None]
  - LUNG ABSCESS [None]
  - SEPSIS SYNDROME [None]
  - COAGULOPATHY [None]
  - PULMONARY OEDEMA [None]
  - DEMENTIA [None]
